FAERS Safety Report 5330803-0 (Version None)
Quarter: 2007Q1

REPORT INFORMATION
  Report Type: 
  Country: None (occurrence: None)
  Receive Date: 20070227
  Receipt Date: 20060801
  Transmission Date: 20070707
  Serious: Yes (Other)
  Sender: FDA-Public Use
  Company Number: 458103

PATIENT
  Age: 24 Year
  Sex: Male

DRUGS (1)
  1. ACCUTANE [Suspect]
     Indication: ACNE
     Dosage: ORAL
     Route: 048
     Dates: start: 20060515, end: 20060606

REACTIONS (2)
  - BLOOD TRIGLYCERIDES INCREASED [None]
  - LIVER FUNCTION TEST ABNORMAL [None]
